FAERS Safety Report 15425301 (Version 2)
Quarter: 2018Q4

REPORT INFORMATION
  Report Type: Report from Study
  Country: CA (occurrence: CA)
  Receive Date: 20180925
  Receipt Date: 20181017
  Transmission Date: 20190204
  Serious: Yes (Death)
  Sender: FDA-Public Use
  Company Number: CA-TAIHO ONCOLOGY  INC-EU-2018-01451

PATIENT
  Age: 68 Year
  Sex: Male
  Weight: 70.9 kg

DRUGS (11)
  1. PANTOPRAZOLE [Concomitant]
     Active Substance: PANTOPRAZOLE
     Dosage: NI
  2. METOPROLOL. [Concomitant]
     Active Substance: METOPROLOL
     Dosage: NI
  3. ZOFRAN [Concomitant]
     Active Substance: ONDANSETRON HYDROCHLORIDE
     Dosage: NI
  4. PEG [Concomitant]
     Active Substance: POLYETHYLENE GLYCOLS
     Dosage: NI
  5. DALTEPARIN [Concomitant]
     Active Substance: DALTEPARIN
     Dosage: NI
  6. LACTULOSE. [Concomitant]
     Active Substance: LACTULOSE
     Dosage: NI
  7. LONSURF [Suspect]
     Active Substance: TIPIRACIL HYDROCHLORIDE\TRIFLURIDINE
     Indication: COLORECTAL CANCER METASTATIC
     Route: 048
     Dates: start: 20180721, end: 20180807
  8. TYLENOL [Concomitant]
     Active Substance: ACETAMINOPHEN
     Dosage: NI
  9. ZOLPIDEM [Concomitant]
     Active Substance: ZOLPIDEM\ZOLPIDEM TARTRATE
     Dosage: NI
  10. HYDROMORPHONE [Concomitant]
     Active Substance: HYDROMORPHONE
     Dosage: NI
  11. DEXAMETHASONE. [Concomitant]
     Active Substance: DEXAMETHASONE
     Dosage: NI

REACTIONS (1)
  - Disease progression [Fatal]

NARRATIVE: CASE EVENT DATE: 20180827
